FAERS Safety Report 9386262 (Version 1)
Quarter: 2013Q3

REPORT INFORMATION
  Report Type: Report from Study
  Country: DE (occurrence: DE)
  Receive Date: 20130708
  Receipt Date: 20130708
  Transmission Date: 20140515
  Serious: Yes (Hospitalization)
  Sender: FDA-Public Use
  Company Number: DE-ROCHE-1217992

PATIENT
  Age: 62 Year
  Sex: Female
  Weight: 54.5 kg

DRUGS (3)
  1. BEVACIZUMAB [Suspect]
     Indication: OVARIAN CANCER
     Dosage: LAST DOSE PRIOR TO EVENT:03/APR/2013
     Route: 042
     Dates: start: 20130220
  2. CARBOPLATIN [Suspect]
     Indication: OVARIAN CANCER
     Dosage: DAILY DOSE:5 AUC, LAST DOSE PRIOR TO EVENT:03/APR/2013
     Route: 042
     Dates: start: 20130220
  3. PACLITAXEL [Suspect]
     Indication: OVARIAN CANCER
     Dosage: LAST DOSE PRIOR TO SAE:03/APR/2013
     Route: 042
     Dates: start: 20130220

REACTIONS (1)
  - Duodenal stenosis [Recovered/Resolved]
